FAERS Safety Report 8600131-6 (Version None)
Quarter: 2012Q3

REPORT INFORMATION
  Report Type: 
  Country: None (occurrence: None)
  Receive Date: 20120817
  Receipt Date: 20120810
  Transmission Date: 20120928
  Serious: Yes (Life-Threatening, Hospitalization)
  Sender: FDA-Public Use
  Company Number: CA-AMGEN-CANSP2012051056

PATIENT
  Age: 88 Year
  Sex: Female
  Weight: 47.619 kg

DRUGS (7)
  1. PROLIA [Suspect]
     Indication: PRODUCT USED FOR UNKNOWN INDICATION
     Dosage: 60 MG, UNK
     Route: 058
  2. VITAMIN D                          /00318501/ [Concomitant]
  3. ARIMIDEX [Concomitant]
     Dosage: 1 MG, UNK
     Route: 048
  4. BISOPROLOL FUMARATE [Concomitant]
     Route: 048
  5. DIOVAN [Concomitant]
     Route: 048
  6. ASPIRIN [Concomitant]
  7. PLAVIX [Concomitant]
     Route: 048

REACTIONS (2)
  - HAEMATOMA [None]
  - CELLULITIS [None]
